FAERS Safety Report 25959891 (Version 1)
Quarter: 2025Q4

REPORT INFORMATION
  Report Type: Spontaneous
  Country: US (occurrence: US)
  Receive Date: 20251026
  Receipt Date: 20251026
  Transmission Date: 20260117
  Serious: No
  Sender: SANOFI AVENTIS
  Company Number: US-SA-2025SA313585

PATIENT
  Sex: Female

DRUGS (8)
  1. DUPIXENT [Suspect]
     Active Substance: DUPILUMAB
     Indication: Asthma
     Dosage: 300 MG, QOW
     Route: 058
  2. AZO Bladder Control With Go Less [Concomitant]
  3. Cosamin [Concomitant]
  4. PRIMIDONE [Concomitant]
     Active Substance: PRIMIDONE
  5. PROLIA [Concomitant]
     Active Substance: DENOSUMAB
  6. TOPIRAMATE [Concomitant]
     Active Substance: TOPIRAMATE
  7. VITAMIN B12 [Concomitant]
     Active Substance: CYANOCOBALAMIN
  8. VITAMIN D3 [Concomitant]
     Active Substance: CHOLECALCIFEROL

REACTIONS (1)
  - Arthralgia [Not Recovered/Not Resolved]
